FAERS Safety Report 14651751 (Version 1)
Quarter: 2018Q1

REPORT INFORMATION
  Report Type: Spontaneous
  Country: GB (occurrence: GB)
  Receive Date: 20180317
  Receipt Date: 20180317
  Transmission Date: 20180509
  Serious: Yes (Other)
  Sender: FDA-Public Use
  Company Number: GB-AUROBINDO-AUR-APL-2018-014279

PATIENT
  Age: 54 Year
  Sex: Male
  Weight: 87 kg

DRUGS (15)
  1. ATORVASTATIN [Concomitant]
     Active Substance: ATORVASTATIN
     Dates: start: 20170919
  2. PARACETAMOL [Concomitant]
     Active Substance: ACETAMINOPHEN
     Dosage: TAKE 1-2 FOUR TIMES A DAY. () ; AS NECESSARY
     Dates: start: 20170724
  3. IMURAN [Concomitant]
     Active Substance: AZATHIOPRINE
     Dates: start: 20171113
  4. CITALOPRAM [Concomitant]
     Active Substance: CITALOPRAM HYDROBROMIDE
     Dates: start: 20171020
  5. COCODAMOL [Concomitant]
     Active Substance: ACETAMINOPHEN\CODEINE PHOSPHATE
     Dates: start: 20170825
  6. AMLODIPINE [Concomitant]
     Active Substance: AMLODIPINE BESYLATE
     Dates: start: 20170724
  7. TAMSULOSIN [Suspect]
     Active Substance: TAMSULOSIN
     Indication: PRODUCT USED FOR UNKNOWN INDICATION
     Dosage: UNK
     Dates: start: 20171217
  8. CASSIA ANGUSTIFOLIA [Concomitant]
     Active Substance: SENNA LEAF
     Dosage: TAKE 2-4 AT NIGHT. () ; AS NECESSARY
     Dates: start: 20170109, end: 20171211
  9. RANITIDINE. [Concomitant]
     Active Substance: RANITIDINE
     Dates: start: 20170109, end: 20171211
  10. ACETYLSALICYLIC ACID [Concomitant]
     Active Substance: ASPIRIN
     Dosage: WITH FOOD.
     Dates: start: 20170109
  11. LAXIDO                             /06401201/ [Concomitant]
     Active Substance: POLYETHYLENE GLYCOL 3350\POTASSIUM CHLORIDE\SODIUM BICARBONATE\SODIUM CHLORIDE
     Dosage: ONE A DAY OR TWO A DAY. ()
     Dates: start: 20170825
  12. LOSARTAN. [Concomitant]
     Active Substance: LOSARTAN
     Indication: PRODUCT USED FOR UNKNOWN INDICATION
     Dosage: 1 DOSAGE FORM, ONCE A DAY
     Dates: start: 20170724
  13. ADVAGRAF [Concomitant]
     Active Substance: TACROLIMUS
     Dates: start: 20171016
  14. FULTIUM D3 [Concomitant]
     Active Substance: CHOLECALCIFEROL
     Dosage: AS DIRECTED
     Dates: start: 20170109
  15. FOLIC ACID. [Concomitant]
     Active Substance: FOLIC ACID
     Dates: start: 20170109

REACTIONS (1)
  - Hypertension [Recovered/Resolved]

NARRATIVE: CASE EVENT DATE: 20180216
